FAERS Safety Report 6131498-9 (Version None)
Quarter: 2009Q1

REPORT INFORMATION
  Report Type: 
  Country: None (occurrence: None)
  Receive Date: 20090325
  Receipt Date: 20080926
  Transmission Date: 20090719
  Serious: Yes (Other)
  Sender: FDA-Public Use
  Company Number: US-BRISTOL-MYERS SQUIBB COMPANY-14317044

PATIENT
  Age: 53 Year
  Sex: Male

DRUGS (6)
  1. ERBITUX [Suspect]
     Indication: NON-SMALL CELL LUNG CANCER
     Route: 042
     Dates: start: 20080827, end: 20080827
  2. PENICILLIN V POTASSIUM [Concomitant]
     Route: 048
  3. LORTAB [Concomitant]
     Dosage: 1 DOSAGE FORM=10/500 ONE EVERY 6 HOURS
  4. XANAX [Concomitant]
     Dosage: NUMBER OF DOSAGES-QID
  5. AMIODARONE HCL [Concomitant]
  6. SPIRIVA [Concomitant]
     Dosage: FORMULATION-INHALER;EVERY MORNING

REACTIONS (1)
  - INFUSION RELATED REACTION [None]
